FAERS Safety Report 8029071-0 (Version None)
Quarter: 2012Q1

REPORT INFORMATION
  Report Type: 
  Country: None (occurrence: None)
  Receive Date: 20120106
  Receipt Date: 20111228
  Transmission Date: 20120608
  Serious: Yes (Other)
  Sender: FDA-Public Use
  Company Number: US-ASTRAZENECA-2011SE45672

PATIENT

DRUGS (2)
  1. HEPARIN [Suspect]
  2. VANDETANIB [Suspect]
     Indication: MALIGNANT GLIOMA
     Route: 048

REACTIONS (2)
  - PULMONARY EMBOLISM [None]
  - HAEMOTHORAX [None]
